FAERS Safety Report 14151609 (Version 1)
Quarter: 2017Q4

REPORT INFORMATION
  Report Type: Spontaneous
  Country: US (occurrence: None)
  Receive Date: 20171101
  Receipt Date: 20171101
  Transmission Date: 20180321
  Serious: Yes (Hospitalization)
  Sender: FDA-Public Use
  Company Number: None

PATIENT
  Age: 69 Year
  Sex: Male
  Weight: 89.9 kg

DRUGS (2)
  1. HYDROMORPHONE [Suspect]
     Active Substance: HYDROMORPHONE
     Indication: PAIN
     Dates: start: 20160824, end: 20170919
  2. MORPHINE [Suspect]
     Active Substance: MORPHINE
     Indication: PAIN
     Dates: start: 20170824, end: 20170919

REACTIONS (6)
  - Confusional state [None]
  - Sedation [None]
  - Acute psychosis [None]
  - Agitation [None]
  - Mental status changes [None]
  - Lethargy [None]

NARRATIVE: CASE EVENT DATE: 20170902
